FAERS Safety Report 17511762 (Version 1)
Quarter: 2020Q1

REPORT INFORMATION
  Report Type: Spontaneous
  Country: US (occurrence: US)
  Receive Date: 20200307
  Receipt Date: 20200307
  Transmission Date: 20200409
  Serious: Yes (Other)
  Sender: FDA-Public Use
  Company Number: US-AUROBINDO-AUR-APL-2020-010955

PATIENT
  Age: 56 Year
  Sex: Female

DRUGS (7)
  1. OMEPRAZOLE. [Suspect]
     Active Substance: OMEPRAZOLE
     Indication: PRODUCT USED FOR UNKNOWN INDICATION
     Dosage: 40 MILLIGRAM, DAILY
     Route: 065
  2. OXYCONTIN [Concomitant]
     Active Substance: OXYCODONE HYDROCHLORIDE
     Indication: CANCER PAIN
     Dosage: UNK
     Route: 065
  3. IPILIMUMAB [Suspect]
     Active Substance: IPILIMUMAB
     Indication: VULVAL CANCER
     Dosage: 2 CYCLES (BETWEEN AUGUST AND OCTOBER)
     Route: 065
  4. OXYCODONE [Concomitant]
     Active Substance: OXYCODONE
     Indication: CANCER PAIN
     Dosage: UNK
     Route: 065
  5. ASPIRIN. [Concomitant]
     Active Substance: ASPIRIN
     Indication: CANCER PAIN
     Dosage: 325 MILLIGRAM, DAILY
     Route: 065
  6. NIVOLUMAB [Suspect]
     Active Substance: NIVOLUMAB
     Indication: VULVAL CANCER
     Dosage: 7 CYCLES (BETWEEN OCTOBER AND MARCH)
     Route: 065
  7. NIVOLUMAB [Suspect]
     Active Substance: NIVOLUMAB
     Dosage: 8 CYCLES
     Route: 065

REACTIONS (6)
  - Fatigue [Unknown]
  - Cough [Unknown]
  - Tubulointerstitial nephritis [Unknown]
  - Acute kidney injury [Recovered/Resolved]
  - Vomiting [Unknown]
  - Nausea [Unknown]
